FAERS Safety Report 5261887-6 (Version None)
Quarter: 2007Q1

REPORT INFORMATION
  Report Type: 
  Country: None (occurrence: None)
  Receive Date: 20070310
  Receipt Date: 20070228
  Transmission Date: 20070707
  Serious: Yes (Other)
  Sender: FDA-Public Use
  Company Number: 2006UW01567

PATIENT
  Sex: Male
  Weight: 135.9 kg

DRUGS (22)
  1. SEROQUEL [Suspect]
     Indication: DEPRESSION
     Route: 048
     Dates: start: 20040325, end: 20040605
  2. SEROQUEL [Suspect]
     Indication: PSYCHOTIC DISORDER
     Route: 048
     Dates: start: 20040325, end: 20040605
  3. SEROQUEL [Suspect]
     Route: 048
     Dates: start: 20040605, end: 20040810
  4. SEROQUEL [Suspect]
     Route: 048
     Dates: start: 20040605, end: 20040810
  5. SEROQUEL [Suspect]
     Route: 048
     Dates: start: 20040810, end: 20050531
  6. SEROQUEL [Suspect]
     Route: 048
     Dates: start: 20040810, end: 20050531
  7. SEROQUEL [Suspect]
     Route: 048
     Dates: start: 20050531, end: 20050729
  8. SEROQUEL [Suspect]
     Route: 048
     Dates: start: 20050531, end: 20050729
  9. SEROQUEL [Suspect]
     Route: 048
     Dates: start: 20050729
  10. SEROQUEL [Suspect]
     Route: 048
     Dates: start: 20050729
  11. HALDOL [Concomitant]
     Dates: start: 20060901
  12. RISPERDAL [Concomitant]
     Dates: start: 20050601
  13. THORAZINE [Concomitant]
  14. ZYPREXA [Concomitant]
     Dates: start: 20050601
  15. WELLBUTRIN [Concomitant]
  16. CELEXA [Concomitant]
  17. PROZAC [Concomitant]
  18. PAXIL [Concomitant]
  19. ZOLOFT [Concomitant]
  20. EFFEXOR [Concomitant]
  21. MARIJUANA [Concomitant]
  22. COCAINE [Concomitant]

REACTIONS (5)
  - CHEST PAIN [None]
  - DIABETES MELLITUS [None]
  - LOSS OF CONSCIOUSNESS [None]
  - PALPITATIONS [None]
  - SUICIDAL IDEATION [None]
